FAERS Safety Report 5728467-7 (Version None)
Quarter: 2008Q2

REPORT INFORMATION
  Report Type: 
  Country: None (occurrence: None)
  Receive Date: 20080502
  Receipt Date: 20080502
  Transmission Date: 20081010
  Serious: No
  Sender: FDA-Public Use
  Company Number: None

PATIENT
  Age: 85 Year
  Sex: Male

DRUGS (9)
  1. CEFTRIAXONE [Suspect]
     Dates: start: 20061016, end: 20061019
  2. SYNTHROID [Concomitant]
  3. DIOVAN [Concomitant]
  4. FOSAMAX [Concomitant]
  5. OS-CAL [Concomitant]
  6. PREVACID [Concomitant]
  7. FLOMAX [Concomitant]
  8. AVODART [Concomitant]
  9. TOBRAMYCIN [Concomitant]

REACTIONS (14)
  - ANAEMIA [None]
  - ANOREXIA [None]
  - CHRONIC HEPATITIS [None]
  - COMPUTERISED TOMOGRAM ABNORMAL [None]
  - GASTROINTESTINAL DISORDER [None]
  - JAUNDICE CHOLESTATIC [None]
  - LIVER INJURY [None]
  - MALIGNANT NEOPLASM PROGRESSION [None]
  - NAUSEA [None]
  - PANCREATITIS ACUTE [None]
  - SEPSIS [None]
  - TRANSFUSION REACTION [None]
  - VOMITING [None]
  - WEIGHT DECREASED [None]
